FAERS Safety Report 9861813 (Version 2)
Quarter: 2014Q3

REPORT INFORMATION
  Report Type: Spontaneous
  Country: SE (occurrence: SE)
  Receive Date: 20140203
  Receipt Date: 20140914
  Transmission Date: 20150326
  Serious: Yes (Other)
  Sender: FDA-Public Use
  Company Number: SE-ROCHE-1341544

PATIENT
  Age: 71 Year
  Sex: Male

DRUGS (15)
  1. ERGENYL [Concomitant]
     Active Substance: VALPROIC ACID
     Route: 065
  2. PROPAVAN [Concomitant]
     Active Substance: PROPIOMAZINE
     Route: 065
  3. TAMIFLU [Suspect]
     Active Substance: OSELTAMIVIR PHOSPHATE
     Indication: INFLUENZA
     Route: 048
     Dates: start: 20140122, end: 20140124
  4. ATENOLOL. [Concomitant]
     Active Substance: ATENOLOL
     Route: 065
  5. CILAXORAL [Concomitant]
     Dosage: 7.5 MG/ML
     Route: 065
  6. PREDNISOLON [Concomitant]
     Active Substance: PREDNISOLONE
     Dosage: DRUG REPORTED AS PREDNISOLON PFIZER 10 MG TABLETT
     Route: 065
  7. ACETYLCYSTEIN [Concomitant]
     Active Substance: ACETYLCYSTEINE
     Route: 065
  8. BEHEPAN [Concomitant]
     Active Substance: HYDROXOCOBALAMIN
     Route: 065
  9. COMBIVENT [Concomitant]
     Active Substance: ALBUTEROL SULFATE\IPRATROPIUM BROMIDE
     Route: 065
  10. BRICANYL [Concomitant]
     Active Substance: TERBUTALINE SULFATE
     Dosage: 0.5 MG/DOS
     Route: 065
  11. ATROVENT [Concomitant]
     Active Substance: IPRATROPIUM BROMIDE
     Dosage: 20 MIKROGRAM/DOS INHALATIONSSPRAY
     Route: 065
  12. FURIX [Concomitant]
     Active Substance: FUROSEMIDE
     Route: 065
  13. ALVEDON [Concomitant]
     Active Substance: ACETAMINOPHEN
     Route: 065
  14. OLANZAPIN [Concomitant]
     Active Substance: OLANZAPINE
     Route: 065
  15. SOBRIL [Concomitant]
     Active Substance: OXAZEPAM
     Route: 065

REACTIONS (1)
  - Thrombocytopenia [Not Recovered/Not Resolved]

NARRATIVE: CASE EVENT DATE: 20140124
